FAERS Safety Report 18681331 (Version 1)
Quarter: 2020Q4

REPORT INFORMATION
  Report Type: Spontaneous
  Country: RU (occurrence: RU)
  Receive Date: 20201230
  Receipt Date: 20201230
  Transmission Date: 20210114
  Serious: Yes (Hospitalization)
  Sender: FDA-Public Use
  Company Number: RU-TEVA-2020-RU-1849266

PATIENT
  Age: 53 Year
  Sex: Male

DRUGS (1)
  1. SUMAMED 500MG [Suspect]
     Active Substance: AZITHROMYCIN ANHYDROUS
     Route: 065

REACTIONS (3)
  - Suspected counterfeit product [Unknown]
  - Pyrexia [Recovering/Resolving]
  - COVID-19 [Unknown]
